FAERS Safety Report 4698527-0 (Version None)
Quarter: 2005Q2

REPORT INFORMATION
  Report Type: 
  Country: None (occurrence: None)
  Receive Date: 20050622
  Receipt Date: 20050609
  Transmission Date: 20051028
  Serious: Yes (Hospitalization)
  Sender: FDA-Public Use
  Company Number: 2005087236

PATIENT
  Age: 79 Year
  Sex: Female
  Weight: 72.5755 kg

DRUGS (10)
  1. DETROL LA [Suspect]
     Indication: INCONTINENCE
     Dosage: 8 MG (4 MG BID INTERVAL: EVERY DAY) ORAL
     Route: 048
     Dates: start: 20041101
  2. AMOXICILLIN [Concomitant]
  3. LIPITOR [Concomitant]
  4. PREMARIN [Concomitant]
  5. POTASSIUM CHLORIDE [Concomitant]
  6. ASPIRIN [Concomitant]
  7. PEPCID [Concomitant]
  8. IRON [Concomitant]
  9. CALCIUM WITH VITAMIN D (CALCIUM PHOSPHATE, CALCIUM SODIUM LACTATE, ERG [Concomitant]
  10. DYAZIDE [Concomitant]

REACTIONS (3)
  - DRUG INEFFECTIVE [None]
  - INFECTION [None]
  - URINARY TRACT INFECTION [None]
